FAERS Safety Report 7018287-8 (Version None)
Quarter: 2010Q3

REPORT INFORMATION
  Report Type: 
  Country: None (occurrence: None)
  Receive Date: 20100927
  Receipt Date: 20100927
  Transmission Date: 20110219
  Serious: Yes (Other)
  Sender: FDA-Public Use
  Company Number: None

PATIENT
  Age: 54 Year
  Sex: Male

DRUGS (1)
  1. OXYCONTIN [Suspect]
     Indication: BACK PAIN
     Dosage: 1 TABLET Q8H PO
     Route: 048
     Dates: start: 20100924, end: 20100925

REACTIONS (2)
  - INADEQUATE ANALGESIA [None]
  - PRODUCT FORMULATION ISSUE [None]
